FAERS Safety Report 5578523-1 (Version None)
Quarter: 2007Q4

REPORT INFORMATION
  Report Type: 
  Country: None (occurrence: None)
  Receive Date: 20071227
  Receipt Date: 20061004
  Transmission Date: 20080405
  Serious: Yes (Other)
  Sender: FDA-Public Use
  Company Number: 2006VX001647

PATIENT
  Age: 78 Year
  Sex: Female
  Weight: 73 kg

DRUGS (2)
  1. CESAMET [Suspect]
  2. REMICADE [Suspect]
     Dosage: 300 MG; 8 YEARLY; IV
     Route: 042

REACTIONS (6)
  - CONDITION AGGRAVATED [None]
  - CONFUSIONAL STATE [None]
  - GAIT DISTURBANCE [None]
  - PAIN [None]
  - SPINAL CORD COMPRESSION [None]
  - TACHYCARDIA [None]
